FAERS Safety Report 25850844 (Version 1)
Quarter: 2025Q3

REPORT INFORMATION
  Report Type: Spontaneous
  Country: EU (occurrence: EU)
  Receive Date: 20250926
  Receipt Date: 20250926
  Transmission Date: 20251020
  Serious: Yes (Other)
  Sender: ROCHE
  Company Number: EU-ROCHE-10000392844

PATIENT
  Age: 51 Year
  Sex: Female

DRUGS (6)
  1. HERCEPTIN [Suspect]
     Active Substance: TRASTUZUMAB
     Indication: Invasive ductal breast carcinoma
     Route: 065
     Dates: start: 202111, end: 202211
  2. PERJETA [Suspect]
     Active Substance: PERTUZUMAB
     Indication: Invasive ductal breast carcinoma
     Route: 065
     Dates: start: 202211, end: 202211
  3. DOCETAXEL [Suspect]
     Active Substance: DOCETAXEL
     Indication: Invasive ductal breast carcinoma
     Route: 065
     Dates: start: 202111, end: 202211
  4. PACLITAXEL [Concomitant]
     Active Substance: PACLITAXEL
  5. GOSERELIN [Concomitant]
     Active Substance: GOSERELIN
     Dates: start: 201911
  6. ANASTROZOLE [Concomitant]
     Active Substance: ANASTROZOLE
     Dates: start: 202301, end: 202307

REACTIONS (6)
  - Cardiac failure [Unknown]
  - Liver disorder [Unknown]
  - Disease progression [Unknown]
  - Retroperitoneal lymphadenopathy [Unknown]
  - Lymphadenopathy [Unknown]
  - COVID-19 [Unknown]

NARRATIVE: CASE EVENT DATE: 20240201
